FAERS Safety Report 17457709 (Version 2)
Quarter: 2020Q1

REPORT INFORMATION
  Report Type: Spontaneous
  Country: RS (occurrence: RS)
  Receive Date: 20200225
  Receipt Date: 20200302
  Transmission Date: 20200409
  Serious: Yes (Other)
  Sender: FDA-Public Use
  Company Number: RS-PFIZER INC-2020071821

PATIENT
  Age: 66 Year
  Sex: Male

DRUGS (6)
  1. PSORALEN [Concomitant]
     Active Substance: PSORALEN
     Indication: POIKILODERMA
     Dosage: UNK
     Dates: end: 201512
  2. INTERFERON ALFA 2A [Concomitant]
     Active Substance: INTERFERON ALFA-2A
     Indication: CUTANEOUS T-CELL LYMPHOMA STAGE II
     Dosage: UNK
     Dates: end: 2019
  3. PSORALEN [Concomitant]
     Active Substance: PSORALEN
     Indication: CUTANEOUS T-CELL LYMPHOMA STAGE II
     Dosage: UNK
     Dates: end: 2019
  4. METHOTREXATE. [Suspect]
     Active Substance: METHOTREXATE
     Indication: CUTANEOUS T-CELL LYMPHOMA STAGE II
     Dosage: UNK
     Dates: end: 2019
  5. METHOTREXATE. [Suspect]
     Active Substance: METHOTREXATE
     Indication: POIKILODERMA
     Dosage: UNK
     Dates: end: 201512
  6. INTERFERON ALFA 2A [Concomitant]
     Active Substance: INTERFERON ALFA-2A
     Indication: POIKILODERMA
     Dosage: UNK
     Dates: end: 201512

REACTIONS (2)
  - Cystitis haemorrhagic [Unknown]
  - Drug ineffective [Unknown]

NARRATIVE: CASE EVENT DATE: 2019
